FAERS Safety Report 23879648 (Version 1)
Quarter: 2024Q2

REPORT INFORMATION
  Report Type: Spontaneous
  Country: US (occurrence: US)
  Receive Date: 20240521
  Receipt Date: 20240521
  Transmission Date: 20240716
  Serious: Yes (Other)
  Sender: FDA-Public Use
  Company Number: US-AMRYT PHARMACEUTICALS DAC-AEGR007130

PATIENT
  Age: 35 Year
  Sex: Male

DRUGS (1)
  1. MYALEPT [Suspect]
     Active Substance: METRELEPTIN
     Indication: Product used for unknown indication
     Dosage: UNK
     Dates: start: 202009

REACTIONS (2)
  - Renal disorder [Unknown]
  - Cardiac disorder [Unknown]
